FAERS Safety Report 4937016-2 (Version None)
Quarter: 2006Q1

REPORT INFORMATION
  Report Type: 
  Country: None (occurrence: None)
  Receive Date: 20060309
  Receipt Date: 20060223
  Transmission Date: 20060701
  Serious: Yes (Life-Threatening)
  Sender: FDA-Public Use
  Company Number: JP-SANOFI-SYNTHELABO-A01200601546

PATIENT
  Age: 57 Year
  Sex: Male

DRUGS (3)
  1. OXALIPLATIN [Suspect]
     Indication: RECTAL CANCER
     Route: 042
     Dates: start: 20060217, end: 20060217
  2. CALCIUM LEVOFOLINATE [Concomitant]
     Route: 042
     Dates: start: 20060217
  3. FLUOROURACIL [Concomitant]
     Dosage: 550 MG IV BOLUS FOLLOWED BY 850 MG INFUSION
     Route: 042
     Dates: start: 20060217

REACTIONS (1)
  - CEREBRAL HAEMORRHAGE [None]
